FAERS Safety Report 17661419 (Version 1)
Quarter: 2020Q2

REPORT INFORMATION
  Report Type: Spontaneous
  Country: US (occurrence: US)
  Receive Date: 20200411
  Receipt Date: 20200411
  Transmission Date: 20200713
  Serious: Yes (Death, Hospitalization)
  Sender: FDA-Public Use
  Company Number: None

PATIENT
  Age: 43 Year
  Sex: Female
  Weight: 86.64 kg

DRUGS (2)
  1. GEMCITABINE HYDROCHLORIDE. [Suspect]
     Active Substance: GEMCITABINE HYDROCHLORIDE
     Dates: end: 20200330
  2. CISPLATIN. [Suspect]
     Active Substance: CISPLATIN
     Dates: end: 20200330

REACTIONS (13)
  - Nausea [None]
  - Tachycardia [None]
  - Anaemia [None]
  - Troponin increased [None]
  - Headache [None]
  - Lethargy [None]
  - Unresponsive to stimuli [None]
  - Hypoxia [None]
  - Interstitial lung disease [None]
  - Diarrhoea [None]
  - Thrombocytopenia [None]
  - Acute respiratory failure [None]
  - Gastrooesophageal reflux disease [None]

NARRATIVE: CASE EVENT DATE: 20200403
